FAERS Safety Report 4768296-4 (Version None)
Quarter: 2005Q3

REPORT INFORMATION
  Report Type: 
  Country: None (occurrence: None)
  Receive Date: 20050906
  Receipt Date: 20050629
  Transmission Date: 20060218
  Serious: No
  Sender: FDA-Public Use
  Company Number: 2005-BP-11086BP

PATIENT
  Sex: Female

DRUGS (11)
  1. SPIRIVA [Suspect]
     Indication: COUGH
     Dosage: 18 MCG (18 MCG, QD), IH
     Route: 055
     Dates: start: 20050629, end: 20050629
  2. SPIRIVA [Suspect]
     Indication: DYSPNOEA
     Dosage: 18 MCG (18 MCG, QD), IH
     Route: 055
     Dates: start: 20050629, end: 20050629
  3. SPIRIVA [Suspect]
  4. ATIVAN [Concomitant]
  5. TRAZODONE (TRAZODONE) [Concomitant]
  6. NIFEDIPINE [Concomitant]
  7. PREVACID [Concomitant]
  8. NASONEX [Concomitant]
  9. CAL-GEST TUMS [Concomitant]
  10. CENTRUM SILVER (CENTRUM SILVER) [Concomitant]
  11. PRILOSEC [Concomitant]

REACTIONS (1)
  - THROAT TIGHTNESS [None]
